FAERS Safety Report 5376561-5 (Version None)
Quarter: 2007Q2

REPORT INFORMATION
  Report Type: 
  Country: None (occurrence: None)
  Receive Date: 20070629
  Receipt Date: 20070619
  Transmission Date: 20071010
  Serious: Yes (Other)
  Sender: FDA-Public Use
  Company Number: GXKR2007PL05312

PATIENT
  Age: 60 Year
  Sex: Female
  Weight: 90 kg

DRUGS (4)
  1. CEFUROXIME AXETIL [Suspect]
     Indication: BRONCHITIS
     Dosage: 500 MG, BID , ORAL
     Route: 048
     Dates: start: 20070222, end: 20070222
  2. RANIGAST (RANITIDINE HYDROCHLORIDE) [Concomitant]
  3. AMBROXOL (AMBROXOL) [Concomitant]
  4. APO-PENTOX (PENTOXYFILLINE) [Concomitant]

REACTIONS (3)
  - DYSPNOEA [None]
  - PALPITATIONS [None]
  - RASH [None]
